FAERS Safety Report 8711623 (Version 2)
Quarter: 2013Q4

REPORT INFORMATION
  Report Type: Spontaneous
  Country: CA (occurrence: CA)
  Receive Date: 20120807
  Receipt Date: 20131105
  Transmission Date: 20140711
  Serious: Yes (Hospitalization)
  Sender: FDA-Public Use
  Company Number: CA-MERCK-1208CAN002248

PATIENT
  Age: 22 Year
  Sex: Female
  Weight: 61 kg

DRUGS (1)
  1. SAPHRIS [Suspect]
     Indication: BIPOLAR DISORDER
     Dosage: 5 MG, QD
     Route: 060
     Dates: start: 201204, end: 201204

REACTIONS (2)
  - Mania [Not Recovered/Not Resolved]
  - Underdose [Unknown]
